FAERS Safety Report 12583955 (Version 1)
Quarter: 2016Q3

REPORT INFORMATION
  Report Type: Report from Study
  Country: PK (occurrence: PK)
  Receive Date: 20160722
  Receipt Date: 20160722
  Transmission Date: 20161109
  Serious: Yes (Other)
  Sender: FDA-Public Use
  Company Number: PHHY2016PK099231

PATIENT
  Age: 44 Year
  Sex: Male

DRUGS (1)
  1. DIOVAN [Suspect]
     Active Substance: VALSARTAN
     Indication: HYPERTENSION
     Dosage: 1 DF, BID
     Route: 048
     Dates: start: 20160525

REACTIONS (2)
  - Diabetes mellitus [Not Recovered/Not Resolved]
  - Off label use [Not Recovered/Not Resolved]

NARRATIVE: CASE EVENT DATE: 20160525
